FAERS Safety Report 19352429 (Version 1)
Quarter: 2021Q2

REPORT INFORMATION
  Report Type: Spontaneous
  Country: CN (occurrence: CN)
  Receive Date: 20210531
  Receipt Date: 20210531
  Transmission Date: 20210717
  Serious: Yes (Other)
  Sender: FDA-Public Use
  Company Number: CN-TAKEDA-2021TUS032997

PATIENT

DRUGS (7)
  1. CREATINE PHOSPHATE [Concomitant]
     Active Substance: PHOSPHOCREATINE
     Indication: VIRAL MYOCARDITIS
     Dosage: UNK
  2. VITAMIN B [Concomitant]
     Active Substance: VITAMIN B
     Indication: VIRAL MYOCARDITIS
     Dosage: UNK
  3. OXYGEN. [Concomitant]
     Active Substance: OXYGEN
     Dosage: UNK
  4. VITAMIN E NOS [Concomitant]
     Active Substance: .ALPHA.-TOCOPHEROL
     Indication: VIRAL MYOCARDITIS
     Dosage: 30 MILLIGRAM
  5. VITAMIN C [Concomitant]
     Active Substance: ASCORBIC ACID
     Indication: VIRAL MYOCARDITIS
     Dosage: 200 MILLIGRAM, TID
  6. PREDNISONE. [Concomitant]
     Active Substance: PREDNISONE
     Indication: VIRAL MYOCARDITIS
     Dosage: UNK
     Route: 048
  7. HUMAN NORMAL IMMUNOGLOBULIN [Suspect]
     Active Substance: HUMAN IMMUNOGLOBULIN G
     Indication: VIRAL MYOCARDITIS
     Dosage: 400 MILLIGRAM/KILOGRAM, QD
     Route: 042

REACTIONS (2)
  - Leukopenia [Unknown]
  - Off label use [Unknown]
